FAERS Safety Report 19578742 (Version 2)
Quarter: 2021Q3

REPORT INFORMATION
  Report Type: Report from Study
  Country: IL (occurrence: IL)
  Receive Date: 20210719
  Receipt Date: 20210728
  Transmission Date: 20211014
  Serious: Yes (Death, Hospitalization, Disabling, Other)
  Sender: FDA-Public Use
  Company Number: NVSC2021IL154775

PATIENT
  Age: 47 Year
  Sex: Female
  Weight: 50 kg

DRUGS (11)
  1. ADAKVEO [Suspect]
     Active Substance: CRIZANLIZUMAB-TMCA
     Dosage: 375 MG
     Route: 065
     Dates: start: 20210701
  2. TEMOZOLOMIDE. [Suspect]
     Active Substance: TEMOZOLOMIDE
     Indication: GLIOBLASTOMA
     Dosage: UNK
     Route: 065
     Dates: start: 202005
  3. KEPPRA [Concomitant]
     Active Substance: LEVETIRACETAM
     Indication: PRODUCT USED FOR UNKNOWN INDICATION
     Dosage: UNK
     Route: 065
  4. METROMIN [Concomitant]
     Indication: PRODUCT USED FOR UNKNOWN INDICATION
     Dosage: UNK
     Route: 065
  5. VITAMIN C [Concomitant]
     Active Substance: ASCORBIC ACID
     Indication: SUPPORTIVE CARE
     Dosage: UNK (STOPPED ON 29?30 JUN 2021)
     Route: 041
     Dates: start: 202106
  6. AVASTIN [Concomitant]
     Active Substance: BEVACIZUMAB
     Indication: OEDEMA
     Dosage: 5 MG/KG
     Route: 065
     Dates: start: 20201231, end: 20210620
  7. ADAKVEO [Suspect]
     Active Substance: CRIZANLIZUMAB-TMCA
     Dosage: 7 MG/KG
     Route: 041
  8. DEPALEPT [Concomitant]
     Active Substance: VALPROIC ACID
     Indication: PRODUCT USED FOR UNKNOWN INDICATION
     Dosage: UNK
     Route: 065
  9. CIPRALEX [Concomitant]
     Active Substance: ESCITALOPRAM OXALATE
     Indication: PRODUCT USED FOR UNKNOWN INDICATION
     Dosage: UNK
     Route: 065
  10. DEXAMETHASONE. [Concomitant]
     Active Substance: DEXAMETHASONE
     Indication: PRODUCT USED FOR UNKNOWN INDICATION
     Dosage: 4 MG
     Route: 065
  11. ADAKVEO [Suspect]
     Active Substance: CRIZANLIZUMAB-TMCA
     Indication: GLIOBLASTOMA
     Dosage: 250 MG (5 MG/KG)
     Route: 042
     Dates: start: 20210520

REACTIONS (8)
  - Overdose [Unknown]
  - Hemiparesis [Fatal]
  - Seizure [Unknown]
  - Asthenia [Unknown]
  - Fatigue [Unknown]
  - Malignant neoplasm progression [Unknown]
  - Aphasia [Fatal]
  - Glioblastoma [Unknown]

NARRATIVE: CASE EVENT DATE: 20210701
